FAERS Safety Report 16837008 (Version 1)
Quarter: 2019Q3

REPORT INFORMATION
  Report Type: Spontaneous
  Country: US (occurrence: US)
  Receive Date: 20190923
  Receipt Date: 20190923
  Transmission Date: 20191005
  Serious: No
  Sender: FDA-Public Use
  Company Number: US-NOVEN PHARMACEUTICALS, INC.-US2018000581

PATIENT

DRUGS (3)
  1. MONTELUKAST [Concomitant]
     Active Substance: MONTELUKAST SODIUM
     Dosage: 10 MG AT NIGHT
  2. COMBIPATCH [Suspect]
     Active Substance: ESTRADIOL\NORETHINDRONE ACETATE
     Indication: OESTROGEN REPLACEMENT THERAPY
     Dosage: 0.05/0.14 MG, UNKNOWN
     Route: 062
     Dates: start: 201808, end: 20180926
  3. CLARITIN [Concomitant]
     Active Substance: LORATADINE
     Dosage: UNK, MORNING

REACTIONS (5)
  - Therapy cessation [Not Recovered/Not Resolved]
  - Product storage error [Not Recovered/Not Resolved]
  - Application site erythema [Not Recovered/Not Resolved]
  - Application site pain [Not Recovered/Not Resolved]
  - Application site scar [Not Recovered/Not Resolved]

NARRATIVE: CASE EVENT DATE: 2018
